FAERS Safety Report 6640574-3 (Version None)
Quarter: 2010Q1

REPORT INFORMATION
  Report Type: 
  Country: None (occurrence: None)
  Receive Date: 20100302
  Receipt Date: 20091109
  Transmission Date: 20100710
  Serious: No
  Sender: FDA-Public Use
  Company Number: 2009296728

PATIENT
  Age: 71 Year
  Sex: Female
  Weight: 61.2 kg

DRUGS (2)
  1. TOVIAZ [Suspect]
     Indication: HYPERTONIC BLADDER
     Dosage: 4 MG, 1X/DAY
     Dates: start: 20091028
  2. TYLENOL (PARACETAMOL) [Concomitant]

REACTIONS (4)
  - DRY EYE [None]
  - EYE IRRITATION [None]
  - EYE PRURITUS [None]
  - OCULAR HYPERAEMIA [None]
